FAERS Safety Report 8688084 (Version 2)
Quarter: 2012Q4

REPORT INFORMATION
  Report Type: Report from Study
  Country: UG (occurrence: UG)
  Receive Date: 20120727
  Receipt Date: 20120830
  Transmission Date: 20130627
  Serious: Yes (Other)
  Sender: FDA-Public Use
  Company Number: UG-ABBOTT-12P-165-0957198-00

PATIENT
  Age: 26 Year
  Sex: Female

DRUGS (2)
  1. KALETRA [Suspect]
     Indication: HIV INFECTION
     Route: 048
     Dates: start: 20110722
  2. ZIDOVUDINE W/LAMIVUDINE [Concomitant]
     Indication: HIV INFECTION
     Route: 048
     Dates: start: 20110722

REACTIONS (3)
  - Stillbirth [Unknown]
  - Foetal exposure during pregnancy [None]
  - Maternal exposure during pregnancy [None]
